FAERS Safety Report 9142174 (Version 2)
Quarter: 2014Q2

REPORT INFORMATION
  Report Type: Spontaneous
  Country: US (occurrence: US)
  Receive Date: 20130305
  Receipt Date: 20140411
  Transmission Date: 20141212
  Serious: Yes (Other)
  Sender: FDA-Public Use
  Company Number: US-B.I. PHARMACEUTICALS,INC./RIDGEFIELD-2013-BI-05641BP

PATIENT
  Age: 75 None
  Sex: Male
  Weight: 75.74 kg

DRUGS (6)
  1. SPIRIVA [Suspect]
     Indication: CHRONIC OBSTRUCTIVE PULMONARY DISEASE
     Dosage: 18 MCG
     Route: 055
     Dates: start: 2010
  2. ATENOLOL [Concomitant]
     Indication: STRESS
     Dosage: 25 MG
     Route: 048
  3. ATENOLOL [Concomitant]
     Indication: CARDIAC DISORDER
  4. SIMVASTATIN [Concomitant]
     Indication: BLOOD CHOLESTEROL INCREASED
     Dosage: 20 MG
     Route: 048
  5. PRILOSEC [Concomitant]
     Indication: GASTROOESOPHAGEAL REFLUX DISEASE
     Dosage: 1 ANZ
     Route: 048
  6. CLOBETASOL [Concomitant]
     Indication: PSORIASIS
     Route: 061

REACTIONS (6)
  - Squamous cell carcinoma of lung [Unknown]
  - Lung neoplasm malignant [Unknown]
  - Lung neoplasm malignant [Recovered/Resolved]
  - Cataract [Recovered/Resolved]
  - Pulmonary mass [Recovered/Resolved]
  - Cataract [Not Recovered/Not Resolved]
